FAERS Safety Report 8968041 (Version 2)
Quarter: 2013Q1

REPORT INFORMATION
  Report Type: Spontaneous
  Country: US (occurrence: US)
  Receive Date: 20121217
  Receipt Date: 20130111
  Transmission Date: 20140127
  Serious: No
  Sender: FDA-Public Use
  Company Number: US-B.I. PHARMACEUTICALS,INC./RIDGEFIELD-2012-BI-01696BP

PATIENT
  Sex: Male
  Weight: 66.69 kg

DRUGS (17)
  1. PRADAXA [Suspect]
     Indication: ATRIAL FIBRILLATION
     Dosage: 300 MG
     Route: 048
     Dates: start: 201106
  2. ASPIRIN [Concomitant]
     Indication: PROPHYLAXIS
     Dosage: 81 MG
     Route: 048
  3. VITAMIN C [Concomitant]
     Dosage: 1000 MG
     Route: 048
  4. OCUGUARD PLUS [Concomitant]
     Indication: GLAUCOMA
     Route: 048
  5. CRESTOR [Concomitant]
     Indication: BLOOD CHOLESTEROL INCREASED
     Dosage: 5 MG
     Route: 048
  6. DIGOXIN [Concomitant]
     Dosage: 0.125 MG
  7. LUMIGAN [Concomitant]
     Indication: GLAUCOMA
  8. GARLIC OIL EXTRACT [Concomitant]
  9. ROYAL JELLY [Concomitant]
     Dosage: 1000 MG
     Route: 048
  10. VITIMIN D [Concomitant]
     Dosage: 1000 MG
  11. MILK THISTLE [Concomitant]
     Dosage: 175 MG
     Route: 048
  12. MAXITROL [Concomitant]
     Indication: EYE LUBRICATION THERAPY
  13. TOPROL XL [Concomitant]
     Dosage: 25 MG
     Route: 048
  14. OMEGA-3 FISH OIL [Concomitant]
     Dosage: 1000 MG
     Route: 048
  15. AZOPT [Concomitant]
     Indication: GLAUCOMA
  16. COMBIGAN [Concomitant]
     Indication: GLAUCOMA
  17. CO-Q10 [Concomitant]
     Dosage: 200 MG
     Route: 048

REACTIONS (2)
  - Cough [Not Recovered/Not Resolved]
  - Rhinorrhoea [Not Recovered/Not Resolved]
